FAERS Safety Report 20153774 (Version 2)
Quarter: 2022Q3

REPORT INFORMATION
  Report Type: Report from Study
  Country: US (occurrence: US)
  Receive Date: 20211207
  Receipt Date: 20220908
  Transmission Date: 20221026
  Serious: No
  Sender: FDA-Public Use
  Company Number: US-ACADIA PHARMACEUTICALS INC.-ACA-2021-PIM-004015

PATIENT
  Age: 88 Year
  Sex: Male

DRUGS (3)
  1. NUPLAZID [Suspect]
     Active Substance: PIMAVANSERIN TARTRATE
     Indication: Parkinson^s disease psychosis
     Dosage: 34 MILLIGRAM, QD
     Route: 065
     Dates: start: 202107, end: 202108
  2. NUPLAZID [Suspect]
     Active Substance: PIMAVANSERIN TARTRATE
     Indication: Hallucination
     Dosage: 34 MILLIGRAM, QD
     Route: 065
     Dates: end: 20220814
  3. NUPLAZID [Suspect]
     Active Substance: PIMAVANSERIN TARTRATE
     Indication: Delusion

REACTIONS (6)
  - Abnormal behaviour [Recovered/Resolved]
  - Delusion [Recovered/Resolved]
  - Inappropriate schedule of product administration [Recovered/Resolved]
  - Abnormal behaviour [Unknown]
  - Suspiciousness [Unknown]
  - Aggression [Unknown]

NARRATIVE: CASE EVENT DATE: 20220814
